FAERS Safety Report 4325028-1 (Version None)
Quarter: 2004Q1

REPORT INFORMATION
  Report Type: 
  Country: None (occurrence: None)
  Receive Date: 20040326
  Receipt Date: 20040322
  Transmission Date: 20041129
  Serious: Yes (Other)
  Sender: FDA-Public Use
  Company Number: GB-ROCHE-362487

PATIENT
  Age: 2 Year
  Sex: Female

DRUGS (1)
  1. ISOTRETINOIN [Suspect]
     Indication: NEUROBLASTOMA
     Route: 065

REACTIONS (4)
  - LYMPHOPENIA [None]
  - NEOPLASM RECURRENCE [None]
  - NEUROBLASTOMA [None]
  - PNEUMOCYSTIS CARINII PNEUMONIA [None]
